FAERS Safety Report 7270117-5 (Version None)
Quarter: 2010Q4

REPORT INFORMATION
  Report Type: 
  Country: None (occurrence: None)
  Receive Date: 20101130
  Receipt Date: 20090804
  Transmission Date: 20110411
  Serious: No
  Sender: FDA-Public Use
  Company Number: 2009SP018434

PATIENT
  Age: 29 Year
  Sex: Female
  Weight: 136.0791 kg

DRUGS (2)
  1. NUVARING [Suspect]
     Indication: PRODUCT USED FOR UNKNOWN INDICATION
     Dosage: VAG
     Route: 067
     Dates: start: 20080901
  2. LOPRESSOR [Concomitant]

REACTIONS (3)
  - FEELING ABNORMAL [None]
  - HYPERTENSION [None]
  - WRONG TECHNIQUE IN DRUG USAGE PROCESS [None]
